FAERS Safety Report 8049355-X (Version None)
Quarter: 2012Q1

REPORT INFORMATION
  Report Type: 
  Country: None (occurrence: None)
  Receive Date: 20120117
  Receipt Date: 20120109
  Transmission Date: 20120608
  Serious: Yes (Other)
  Sender: FDA-Public Use
  Company Number: DE-ROCHE-1021074

PATIENT
  Age: 50 Year
  Sex: Male
  Weight: 75 kg

DRUGS (19)
  1. MYCOPHENOLATE MOFETIL [Concomitant]
     Indication: PEMPHIGUS
     Route: 048
     Dates: start: 20100111
  2. ERGOCALCIFEROL [Concomitant]
     Indication: PROPHYLAXIS
     Route: 048
     Dates: start: 20100117
  3. PANTOPRAZOLE [Concomitant]
     Indication: PROPHYLAXIS
     Route: 048
     Dates: start: 20100111
  4. ACETAMINOPHEN [Concomitant]
     Route: 048
     Dates: start: 20100214, end: 20100214
  5. ACYCLOVIR [Concomitant]
     Route: 061
     Dates: start: 20100111, end: 20100116
  6. FRAGMIN P FORTE [Concomitant]
     Dates: start: 20100209, end: 20100212
  7. ACETAMINOPHEN [Concomitant]
     Indication: PROPHYLAXIS
     Route: 048
     Dates: start: 20100116, end: 20100116
  8. ACETAMINOPHEN [Concomitant]
     Route: 048
     Dates: start: 20100212, end: 20100212
  9. FORTECORTIN [Concomitant]
     Route: 042
     Dates: start: 20100210, end: 20100212
  10. FRAGMIN P FORTE [Concomitant]
     Indication: PROPHYLAXIS
     Dates: start: 20100111, end: 20100116
  11. CETIRIZINE HCL [Concomitant]
     Route: 048
     Dates: start: 20100212, end: 20100212
  12. AMPHOTERICIN B [Concomitant]
     Route: 048
     Dates: start: 20100111, end: 20100116
  13. CETIRIZINE HCL [Concomitant]
     Indication: PROPHYLAXIS
     Route: 048
     Dates: start: 20100116, end: 20100116
  14. RITUXIMAB [Suspect]
     Indication: PEMPHIGUS
     Route: 042
     Dates: start: 20100116, end: 20100212
  15. FORTECORTIN [Concomitant]
     Indication: PEMPHIGUS
     Route: 042
     Dates: start: 20100114, end: 20100116
  16. CALCIUM [Concomitant]
     Indication: PROPHYLAXIS
     Route: 048
     Dates: start: 20100111
  17. CETIRIZINE HCL [Concomitant]
     Route: 048
     Dates: start: 20100214, end: 20100214
  18. HYDROCORTISONE [Concomitant]
     Route: 048
     Dates: start: 20100114, end: 20100114
  19. LAMIVUDINE [Concomitant]
     Indication: HEPATITIS

REACTIONS (1)
  - HEPATIC ENZYME INCREASED [None]
